FAERS Safety Report 15900333 (Version 3)
Quarter: 2020Q3

REPORT INFORMATION
  Report Type: Report from Study
  Country: DE (occurrence: DE)
  Receive Date: 20190201
  Receipt Date: 20190211
  Transmission Date: 20201105
  Serious: Yes (Hospitalization)
  Sender: FDA-Public Use
  Company Number: DE-JNJFOC-20181044336

PATIENT
  Sex: Female
  Weight: 66.3 kg

DRUGS (3)
  1. TRABECTEDIN [Suspect]
     Active Substance: TRABECTEDIN
     Route: 042
  2. TRABECTEDIN [Suspect]
     Active Substance: TRABECTEDIN
     Route: 042
  3. TRABECTEDIN [Suspect]
     Active Substance: TRABECTEDIN
     Indication: UTERINE LEIOMYOSARCOMA
     Dosage: CYCLE 1 DAY 1
     Route: 042
     Dates: start: 20181012, end: 20181012

REACTIONS (2)
  - Pneumonia [Recovered/Resolved]
  - Infected neoplasm [Recovered/Resolved with Sequelae]

NARRATIVE: CASE EVENT DATE: 20181018
